FAERS Safety Report 8125699-8 (Version None)
Quarter: 2012Q1

REPORT INFORMATION
  Report Type: 
  Country: None (occurrence: None)
  Receive Date: 20120206
  Receipt Date: 20120121
  Transmission Date: 20120608
  Serious: Yes (Other)
  Sender: FDA-Public Use
  Company Number: 7108218

PATIENT
  Age: 39 Year
  Sex: Female

DRUGS (3)
  1. EUTHROX (LEVOTHYROXINE SODIUM) (LEVOTHYROXINE SODIUM) [Suspect]
     Indication: PRODUCT USED FOR UNKNOWN INDICATION
     Route: 048
     Dates: start: 20111217, end: 20111220
  2. DELTACORTIL (PREDNISOLONE) (PREDNISOLONE) (PREDNISOLONE0 [Suspect]
     Indication: PRODUCT USED FOR UNKNOWN INDICATION
     Dosage: (5 MG, 1X1)
     Route: 048
     Dates: start: 20111217, end: 20111220
  3. SAIZEN [Suspect]
     Indication: PRODUCT USED FOR UNKNOWN INDICATION
     Dosage: 0.4286 MG (0.6 MG, 5 IN 1 WK)
     Route: 058
     Dates: start: 20111217, end: 20111220

REACTIONS (3)
  - ANGINA PECTORIS [None]
  - ALOPECIA [None]
  - TREMOR [None]
